FAERS Safety Report 19770184 (Version 1)
Quarter: 2021Q3

REPORT INFORMATION
  Report Type: Spontaneous
  Country: US (occurrence: US)
  Receive Date: 20210831
  Receipt Date: 20210831
  Transmission Date: 20211014
  Serious: No
  Sender: FDA-Public Use
  Company Number: None

PATIENT
  Age: 52 Year
  Sex: Female
  Weight: 100 kg

DRUGS (2)
  1. CASIRIVIMAB. [Suspect]
     Active Substance: CASIRIVIMAB
     Indication: COVID-19 TREATMENT
     Dosage: ?          OTHER FREQUENCY:SINGLE DOSE;?
     Route: 041
     Dates: start: 20210830, end: 20210830
  2. IMDEVIMAB (REGN 10987) [Suspect]
     Active Substance: IMDEVIMAB
     Indication: COVID-19 TREATMENT
     Dosage: ?          OTHER FREQUENCY:SINGLE DOSE;?
     Route: 041
     Dates: start: 20210830, end: 20210830

REACTIONS (4)
  - Heart rate decreased [None]
  - Dyspnoea [None]
  - Blood pressure decreased [None]
  - Hyperhidrosis [None]

NARRATIVE: CASE EVENT DATE: 20210830
